FAERS Safety Report 5467119-8 (Version None)
Quarter: 2007Q3

REPORT INFORMATION
  Report Type: 
  Country: None (occurrence: None)
  Receive Date: 20070920
  Receipt Date: 20070906
  Transmission Date: 20080115
  Serious: Yes (Death)
  Sender: FDA-Public Use
  Company Number: 070907-0000826

PATIENT

DRUGS (4)
  1. DACTINOMYCIN [Suspect]
     Indication: GERM CELL CANCER
     Dosage: 1 MG/M**2
  2. METHOTREXATE [Suspect]
     Indication: GERM CELL CANCER
  3. ETOPOSIDE [Suspect]
     Indication: GERM CELL CANCER
     Dosage: 90 MG/M**2
  4. CISPLATIN [Suspect]
     Indication: GERM CELL CANCER
     Dosage: 50 MG/M**2

REACTIONS (1)
  - SEPSIS [None]
